FAERS Safety Report 14349580 (Version 1)
Quarter: 2018Q1

REPORT INFORMATION
  Report Type: Report from Study
  Country: US (occurrence: US)
  Receive Date: 20180104
  Receipt Date: 20180104
  Transmission Date: 20180509
  Serious: Yes (Death, Life-Threatening)
  Sender: FDA-Public Use
  Company Number: US-ROCHE-2013155

PATIENT
  Age: 32 Year
  Sex: Male

DRUGS (5)
  1. VASOPRESSIN. [Concomitant]
     Active Substance: VASOPRESSIN
     Route: 065
     Dates: start: 20140621
  2. NORADRENALINE [Concomitant]
     Active Substance: NOREPINEPHRINE
     Dosage: .
     Route: 065
     Dates: start: 20140621
  3. TOCILIZUMAB. [Suspect]
     Active Substance: TOCILIZUMAB
     Indication: CYTOKINE RELEASE SYNDROME
     Dosage: MOST RECENT DOSE: 20/JUN/2014
     Route: 042
     Dates: start: 20140619
  4. SOLU-MEDROL [Concomitant]
     Active Substance: METHYLPREDNISOLONE SODIUM SUCCINATE
     Route: 065
     Dates: start: 20140621
  5. TISAGENLECLEUCEL. [Suspect]
     Active Substance: TISAGENLECLEUCEL
     Indication: PRODUCT USED FOR UNKNOWN INDICATION
     Route: 041
     Dates: start: 20140617

REACTIONS (4)
  - Renal failure [Unknown]
  - Atrial fibrillation [Unknown]
  - Sepsis [Fatal]
  - Oliguria [Unknown]

NARRATIVE: CASE EVENT DATE: 20140622
